FAERS Safety Report 16025663 (Version 1)
Quarter: 2019Q1

REPORT INFORMATION
  Report Type: Spontaneous
  Country: IN (occurrence: IN)
  Receive Date: 20190302
  Receipt Date: 20190302
  Transmission Date: 20190418
  Serious: Yes (Other)
  Sender: FDA-Public Use
  Company Number: IN-ZYDUS-034303

PATIENT
  Age: 38 Year
  Sex: Male

DRUGS (1)
  1. TOPIRAMATE. [Suspect]
     Active Substance: TOPIRAMATE
     Indication: HEADACHE
     Route: 048

REACTIONS (8)
  - Hypermetropia [Recovered/Resolved]
  - Maculopathy [Unknown]
  - Intraocular pressure increased [Recovered/Resolved]
  - Angle closure glaucoma [Unknown]
  - Visual acuity reduced [Recovered/Resolved]
  - Myopia [Recovered/Resolved]
  - Choroidal effusion [Unknown]
  - Chorioretinopathy [Unknown]
